FAERS Safety Report 17350689 (Version 1)
Quarter: 2020Q1

REPORT INFORMATION
  Report Type: Spontaneous
  Country: IT (occurrence: IT)
  Receive Date: 20200130
  Receipt Date: 20200130
  Transmission Date: 20200409
  Serious: Yes (Hospitalization)
  Sender: FDA-Public Use
  Company Number: IT-TEVA-2020-IT-1177479

PATIENT
  Age: 26 Year
  Sex: Female

DRUGS (3)
  1. INHIXA [Concomitant]
     Active Substance: ENOXAPARIN SODIUM
     Indication: THROMBOSIS PROPHYLAXIS
     Route: 058
     Dates: start: 20191217, end: 20200111
  2. METOTRESSATO TEVA 100 MG/ML SOLUZIONE INIETTABILE [Suspect]
     Active Substance: METHOTREXATE SODIUM
     Indication: OSTEOSARCOMA
     Dosage: 12 GRAM
     Route: 042
     Dates: start: 20200109, end: 20200109
  3. OMEPRAZOLE. [Concomitant]
     Active Substance: OMEPRAZOLE
     Indication: DYSPEPSIA
     Route: 048
     Dates: start: 20191217, end: 20200114

REACTIONS (2)
  - Drug clearance decreased [Unknown]
  - Renal failure [Unknown]

NARRATIVE: CASE EVENT DATE: 20200110
